FAERS Safety Report 15201915 (Version 2)
Quarter: 2018Q4

REPORT INFORMATION
  Report Type: Report from Study
  Country: US (occurrence: US)
  Receive Date: 20180726
  Receipt Date: 20181012
  Transmission Date: 20190204
  Serious: Yes (Other)
  Sender: FDA-Public Use
  Company Number: PHEH2018US030399

PATIENT
  Age: 76 Year
  Sex: Male
  Weight: 61.68 kg

DRUGS (4)
  1. AFINITOR [Suspect]
     Active Substance: EVEROLIMUS
     Indication: METASTATIC CARCINOID TUMOUR
     Dosage: UNK
     Route: 048
     Dates: start: 20160702, end: 20160808
  2. SANDOSTATIN LAR DEPOT [Suspect]
     Active Substance: OCTREOTIDE ACETATE
     Indication: METASTATIC CARCINOID TUMOUR
     Dosage: 40 MG, QMO
     Route: 030
     Dates: start: 201101, end: 20180523
  3. AFINITOR [Suspect]
     Active Substance: EVEROLIMUS
     Dosage: 5 MG, UNK
     Route: 048
     Dates: start: 20160809
  4. TAFINLAR [Suspect]
     Active Substance: DABRAFENIB MESYLATE
     Indication: PRODUCT USED FOR UNKNOWN INDICATION
     Dosage: UNK
     Route: 065

REACTIONS (24)
  - Cholelithiasis [Not Recovered/Not Resolved]
  - Carotid artery stenosis [Recovered/Resolved]
  - Hyperkalaemia [Recovered/Resolved]
  - Pulmonary mass [Not Recovered/Not Resolved]
  - Rosacea [Not Recovered/Not Resolved]
  - Carcinoid tumour [Recovered/Resolved]
  - Benign prostatic hyperplasia [Not Recovered/Not Resolved]
  - Oral pain [Unknown]
  - Skin lesion [Not Recovered/Not Resolved]
  - Type V hyperlipidaemia [Not Recovered/Not Resolved]
  - Type 2 diabetes mellitus [Not Recovered/Not Resolved]
  - Osteoarthritis [Not Recovered/Not Resolved]
  - Rash [Recovered/Resolved]
  - Type IIa hyperlipidaemia [Recovered/Resolved]
  - Metastatic carcinoid tumour [Unknown]
  - Malignant neoplasm progression [Unknown]
  - Metastases to lymph nodes [Not Recovered/Not Resolved]
  - Weight decreased [Not Recovered/Not Resolved]
  - Depression [Not Recovered/Not Resolved]
  - Tobacco abuse [Recovered/Resolved]
  - Grief reaction [Not Recovered/Not Resolved]
  - Anxiety [Not Recovered/Not Resolved]
  - Essential hypertension [Not Recovered/Not Resolved]
  - Abdominal pain [Recovered/Resolved]

NARRATIVE: CASE EVENT DATE: 201507
